FAERS Safety Report 4293718-5 (Version None)
Quarter: 2004Q1

REPORT INFORMATION
  Report Type: 
  Country: None (occurrence: None)
  Receive Date: 20040212
  Receipt Date: 20040209
  Transmission Date: 20041129
  Serious: Yes (Other)
  Sender: FDA-Public Use
  Company Number: US-GLAXOSMITHKLINE-A0497207A

PATIENT
  Age: 89 Year
  Sex: Female

DRUGS (14)
  1. PAXIL [Suspect]
     Dosage: 20MG PER DAY
     Route: 048
  2. TOPROL-XL [Concomitant]
  3. NEXIUM [Concomitant]
  4. LASIX [Concomitant]
  5. SPIRONOLACTONE [Concomitant]
  6. SYNTHROID [Concomitant]
  7. OXYCONTIN [Concomitant]
  8. NORVASC [Concomitant]
  9. AMBIEN [Concomitant]
  10. ZOCOR [Concomitant]
  11. PERCOCET [Concomitant]
  12. NPH ILETIN II [Concomitant]
  13. TRUSOPT EYE DROPS [Concomitant]
  14. XALATAN [Concomitant]

REACTIONS (3)
  - AMNESIA [None]
  - HALLUCINATION [None]
  - THROMBOSIS [None]
